FAERS Safety Report 4715567-3 (Version None)
Quarter: 2005Q3

REPORT INFORMATION
  Report Type: 
  Country: None (occurrence: None)
  Receive Date: 20050713
  Receipt Date: 20050627
  Transmission Date: 20060218
  Serious: Yes (Hospitalization)
  Sender: FDA-Public Use
  Company Number: DSA_26746_2005

PATIENT
  Age: 53 Year
  Sex: Female

DRUGS (5)
  1. DILTIAZEM [Suspect]
     Dosage: DF
  2. CEFTRIAXONE [Concomitant]
  3. GENTAMICIN [Concomitant]
  4. LINCOMYCIN HCL [Concomitant]
  5. PENTAERYTHRITOL TETRANITRATE [Concomitant]

REACTIONS (5)
  - DRUG HYPERSENSITIVITY [None]
  - NEOPLASM MALIGNANT [None]
  - POSTOPERATIVE INFECTION [None]
  - PURPURA [None]
  - STRESS [None]
